FAERS Safety Report 13296504 (Version 3)
Quarter: 2017Q2

REPORT INFORMATION
  Report Type: Report from Study
  Country: None (occurrence: AR)
  Receive Date: 20170305
  Receipt Date: 20170413
  Transmission Date: 20170830
  Serious: Yes (Death, Other)
  Sender: FDA-Public Use
  Company Number: AR-ABBVIE-17K-007-1896196-00

PATIENT
  Age: 67 Year
  Sex: Male

DRUGS (1)
  1. HUMIRA [Suspect]
     Active Substance: ADALIMUMAB
     Indication: RHEUMATOID ARTHRITIS
     Route: 058
     Dates: start: 20130501

REACTIONS (3)
  - Chronic obstructive pulmonary disease [Unknown]
  - Multimorbidity [Unknown]
  - Infarction [Fatal]

NARRATIVE: CASE EVENT DATE: 201702
